FAERS Safety Report 9816640 (Version 1)
Quarter: 2014Q1

REPORT INFORMATION
  Report Type: Spontaneous
  Country: US (occurrence: US)
  Receive Date: 20140114
  Receipt Date: 20140114
  Transmission Date: 20141002
  Serious: Yes (Death)
  Sender: FDA-Public Use
  Company Number: US-PFIZER INC-2014007176

PATIENT
  Age: 69 Year
  Sex: Male

DRUGS (9)
  1. AMLODIPINE BESILATE [Suspect]
     Dosage: UNK
  2. ATORVASTATIN CALCIUM [Suspect]
  3. LITHIUM [Suspect]
  4. INSULIN [Suspect]
     Dosage: UNK
  5. FOSINOPRIL/HYDROCHLOROTHIAZIDE [Suspect]
  6. FOSINOPRIL [Suspect]
  7. DULOXETINE [Suspect]
     Dosage: UNK
  8. PAROXETINE [Suspect]
     Dosage: UNK
  9. ESOMEPRAZOLE [Suspect]

REACTIONS (1)
  - Completed suicide [Fatal]
